FAERS Safety Report 17147900 (Version 1)
Quarter: 2019Q4

REPORT INFORMATION
  Report Type: Spontaneous
  Country: CN (occurrence: CN)
  Receive Date: 20191212
  Receipt Date: 20191212
  Transmission Date: 20200122
  Serious: Yes (Other)
  Sender: FDA-Public Use
  Company Number: CN-PFM-2019-14996

PATIENT

DRUGS (3)
  1. NAVELBINE [Suspect]
     Active Substance: VINORELBINE TARTRATE
     Indication: BREAST CANCER
     Dosage: 35 MG, QD (1/DAY)
     Route: 042
     Dates: start: 20191116, end: 20191116
  2. NAVELBINE [Suspect]
     Active Substance: VINORELBINE TARTRATE
     Indication: CHEMOTHERAPY
  3. SODIUM CHLORIDE. [Concomitant]
     Active Substance: SODIUM CHLORIDE
     Indication: VEHICLE SOLUTION USE
     Dosage: 125 ML, QD (1/DAY)
     Route: 042
     Dates: start: 20191116, end: 20191116

REACTIONS (5)
  - Hyperhidrosis [Recovering/Resolving]
  - Hypersensitivity [Recovering/Resolving]
  - Chest discomfort [Recovering/Resolving]
  - Abdominal pain [Recovering/Resolving]
  - Dyspnoea [Recovering/Resolving]

NARRATIVE: CASE EVENT DATE: 20191116
